FAERS Safety Report 13685757 (Version 1)
Quarter: 2017Q2

REPORT INFORMATION
  Report Type: Spontaneous
  Country: US (occurrence: US)
  Receive Date: 20170623
  Receipt Date: 20170623
  Transmission Date: 20170830
  Serious: No
  Sender: FDA-Public Use
  Company Number: US-ROCHE-1238290

PATIENT
  Sex: Female
  Weight: 117.59 kg

DRUGS (33)
  1. PLAQUENIL [Concomitant]
     Active Substance: HYDROXYCHLOROQUINE SULFATE
     Route: 065
     Dates: start: 2003
  2. EFFEXOR [Concomitant]
     Active Substance: VENLAFAXINE HYDROCHLORIDE
     Dosage: 1 CAPSULE DAILY FOR MOOD
     Route: 048
     Dates: start: 2005
  3. CLOPIDOGREL [Concomitant]
     Active Substance: CLOPIDOGREL BISULFATE
     Dosage: DAILY
     Route: 048
     Dates: start: 20130226
  4. PLAVIX [Concomitant]
     Active Substance: CLOPIDOGREL BISULFATE
     Dosage: DAILY
     Route: 065
  5. CETIRIZINE [Concomitant]
     Active Substance: CETIRIZINE HYDROCHLORIDE
     Indication: HYPERSENSITIVITY
     Dosage: ONE TABLET ORALLY ONCE A DAY AT BEDTIME
     Route: 048
  6. CHOLECALCIFEROL [Concomitant]
     Active Substance: CHOLECALCIFEROL
     Dosage: ONE CAPSULE ORALLY ONCE A DA FOR SUPPLEMENT
     Route: 048
  7. LANTUS [Concomitant]
     Active Substance: INSULIN GLARGINE
     Indication: DIABETES MELLITUS
     Dosage: 15 U AT BEDTIME, DAILY, 100 UNITS/ML
     Route: 058
     Dates: start: 20130315
  8. ATIVAN [Concomitant]
     Active Substance: LORAZEPAM
     Dosage: AT BEDTIME AS NEEDED SLEEP
     Route: 065
  9. CELLCEPT [Suspect]
     Active Substance: MYCOPHENOLATE MOFETIL\MYCOPHENOLATE MOFETIL HYDROCHLORIDE
     Dosage: TWO TABLETS TWICE DAILY
     Route: 048
     Dates: start: 20081002
  10. ATORVASTATIN [Concomitant]
     Active Substance: ATORVASTATIN
     Indication: BLOOD CHOLESTEROL INCREASED
     Dosage: 1 TABLET AT BEDTIME, DAILY
     Route: 065
     Dates: start: 20130214
  11. LEVOTHYROXINE. [Concomitant]
     Active Substance: LEVOTHYROXINE
     Route: 048
     Dates: start: 20080704
  12. METOPROLOLTARTRAT [Concomitant]
     Dosage: TAKE 1 TABLET
     Route: 065
     Dates: start: 20130214
  13. METOPROLOLTARTRAT [Concomitant]
     Route: 048
     Dates: start: 20130226
  14. LORAZEPAM. [Concomitant]
     Active Substance: LORAZEPAM
     Dosage: BEDTIME AS NEEDED
     Route: 065
  15. PLAQUENIL [Concomitant]
     Active Substance: HYDROXYCHLOROQUINE SULFATE
     Dosage: ONCE DAILY
     Route: 065
  16. CLOPIDOGREL [Concomitant]
     Active Substance: CLOPIDOGREL BISULFATE
     Dosage: TAKE 2  PER DAY , AFTER 2-18 1 PER DAY FOR CLOT PREVENTION
     Route: 048
     Dates: start: 20130214
  17. AMITRIPTYLINE [Concomitant]
     Active Substance: AMITRIPTYLINE
  18. ASPIRIN. [Concomitant]
     Active Substance: ASPIRIN
     Dosage: DAILY
     Route: 048
     Dates: start: 20081204
  19. AMLODIPINE BESILATE [Concomitant]
     Active Substance: AMLODIPINE BESYLATE
     Indication: BLOOD PRESSURE MEASUREMENT
     Dosage: 1 TABLET IN AM
     Route: 048
     Dates: start: 20081020
  20. LYRICA [Concomitant]
     Active Substance: PREGABALIN
     Dosage: DAILY
     Route: 065
  21. LEVOTHYROXINE. [Concomitant]
     Active Substance: LEVOTHYROXINE
     Dosage: 1 TABLET IN AM, DAILY, LOW THYROID
     Route: 048
     Dates: start: 2003
  22. POTASSIUM CHLORIDE. [Concomitant]
     Active Substance: POTASSIUM CHLORIDE
     Route: 065
     Dates: start: 20130314
  23. LORAZEPAM. [Concomitant]
     Active Substance: LORAZEPAM
     Indication: INSOMNIA
     Dosage: 2 TABLET AT A BEDTIME
     Route: 065
     Dates: start: 2010
  24. NEXIUM [Concomitant]
     Active Substance: ESOMEPRAZOLE MAGNESIUM
     Indication: GASTRIC DISORDER
     Dosage: DAILY
     Route: 048
  25. METOPROLOL SUCCINATE. [Concomitant]
     Active Substance: METOPROLOL SUCCINATE
     Dosage: 50 MG, TWO TIMES A DAY
     Route: 048
  26. CELLCEPT [Suspect]
     Active Substance: MYCOPHENOLATE MOFETIL\MYCOPHENOLATE MOFETIL HYDROCHLORIDE
     Indication: SYSTEMIC LUPUS ERYTHEMATOSUS
     Dosage: 2 TABLETS IN AM, 2 TABLETS IN PM, TWO TABLETS TWICE DAILY
     Route: 048
     Dates: start: 2005
  27. ACIPHEX [Concomitant]
     Active Substance: RABEPRAZOLE SODIUM
     Route: 065
     Dates: start: 20130214
  28. TRIAMTERENE AND HYDROCHLOROTHIAZIDE [Concomitant]
     Active Substance: HYDROCHLOROTHIAZIDE\TRIAMTERENE
     Indication: HYPERTENSION
     Dosage: 25 MG/37.5
     Route: 065
     Dates: start: 2005
  29. LYRICA [Concomitant]
     Active Substance: PREGABALIN
     Dosage: TAKE 2 CAPSULE/AM AND 2 CAPSULE /PM
     Route: 065
     Dates: start: 20110325
  30. ATORVASTATIN [Concomitant]
     Active Substance: ATORVASTATIN
     Dosage: DAILY
     Route: 048
     Dates: start: 20130226
  31. LORAZEPAM. [Concomitant]
     Active Substance: LORAZEPAM
     Dosage: TWO TABLETS AT BEDTIME
     Route: 048
     Dates: start: 20120105
  32. METFORMIN [Concomitant]
     Active Substance: METFORMIN HYDROCHLORIDE
     Route: 065
     Dates: start: 201202
  33. FLUTICASONE. [Concomitant]
     Active Substance: FLUTICASONE
     Indication: RHINITIS
     Dosage: 50 MCG/INH, DAILY
     Route: 045
     Dates: start: 20080611

REACTIONS (5)
  - Urticaria [Unknown]
  - Pain [Unknown]
  - Rash [Recovering/Resolving]
  - Pruritus [Unknown]
  - Pyrexia [Unknown]
